FAERS Safety Report 8915993 (Version 2)
Quarter: 2013Q1

REPORT INFORMATION
  Report Type: Spontaneous
  Country: US (occurrence: US)
  Receive Date: 20121119
  Receipt Date: 20130215
  Transmission Date: 20140127
  Serious: Yes (Other)
  Sender: FDA-Public Use
  Company Number: US-GLAXOSMITHKLINE-A1001318A

PATIENT
  Age: 48 Year
  Sex: Female

DRUGS (4)
  1. POTIGA [Suspect]
     Indication: PARTIAL SEIZURES
     Dosage: 300MG THREE TIMES PER DAY
     Route: 048
     Dates: end: 20121114
  2. LAMICTAL [Suspect]
     Indication: PARTIAL SEIZURES
     Dosage: 200MG TWICE PER DAY
     Route: 048
  3. KEPPRA [Suspect]
     Indication: PRODUCT USED FOR UNKNOWN INDICATION
     Dosage: 1500MG TWICE PER DAY
     Route: 065
  4. PHENOBARBITAL [Suspect]

REACTIONS (1)
  - Convulsion [Unknown]
